FAERS Safety Report 6397123-7 (Version None)
Quarter: 2009Q4

REPORT INFORMATION
  Report Type: 
  Country: None (occurrence: None)
  Receive Date: 20091012
  Receipt Date: 20091006
  Transmission Date: 20100525
  Serious: Yes (Hospitalization)
  Sender: FDA-Public Use
  Company Number: A0805366A

PATIENT
  Sex: Female

DRUGS (5)
  1. ADVAIR DISKUS 100/50 [Suspect]
     Indication: CHRONIC OBSTRUCTIVE PULMONARY DISEASE
     Dosage: 1PUFF TWICE PER DAY
     Route: 055
     Dates: start: 20080901
  2. SINGULAIR [Suspect]
     Indication: CHRONIC OBSTRUCTIVE PULMONARY DISEASE
  3. LISINOPRIL [Concomitant]
  4. VERAPAMIL [Concomitant]
  5. LOVASTATIN [Concomitant]

REACTIONS (5)
  - DYSPNOEA [None]
  - OROPHARYNGEAL PAIN [None]
  - THROAT IRRITATION [None]
  - VITREOUS FLOATERS [None]
  - WEIGHT INCREASED [None]
